FAERS Safety Report 6013556-2 (Version None)
Quarter: 2008Q4

REPORT INFORMATION
  Report Type: 
  Country: None (occurrence: None)
  Receive Date: 20081218
  Receipt Date: 20081218
  Transmission Date: 20090506
  Serious: Yes (Hospitalization)
  Sender: FDA-Public Use
  Company Number: None

PATIENT
  Sex: Female
  Weight: 53 kg

DRUGS (13)
  1. CISPLATIN [Suspect]
     Dosage: 115 MG
     Dates: end: 20080707
  2. GEMCITABINE HCL [Suspect]
     Dosage: 3670 MG
     Dates: end: 20080714
  3. ALOXI [Concomitant]
  4. ATENOLOL [Concomitant]
  5. BENADRYL [Concomitant]
  6. BENICAR HCT [Concomitant]
  7. DEXAMETHASONE [Concomitant]
  8. LEVOFLAXACINE [Concomitant]
  9. LEXAPRO [Concomitant]
  10. LISINOPRIL [Concomitant]
  11. NEXIUM [Concomitant]
  12. ONDANSETRON HCL [Concomitant]
  13. PERCOCET [Concomitant]

REACTIONS (2)
  - PLATELET COUNT DECREASED [None]
  - URINARY TRACT INFECTION [None]
